FAERS Safety Report 8213478-2 (Version None)
Quarter: 2012Q1

REPORT INFORMATION
  Report Type: 
  Country: None (occurrence: None)
  Receive Date: 20120315
  Receipt Date: 20120312
  Transmission Date: 20120608
  Serious: Yes (Hospitalization)
  Sender: FDA-Public Use
  Company Number: BE-ABBOTT-12P-013-0906465-00

PATIENT
  Sex: Female

DRUGS (3)
  1. HUMIRA [Suspect]
     Route: 058
     Dates: start: 20110726
  2. METHOTREXATE [Concomitant]
     Indication: RHEUMATOID ARTHRITIS
  3. HUMIRA [Suspect]
     Indication: RHEUMATOID ARTHRITIS
     Route: 058
     Dates: start: 20070417, end: 20110615

REACTIONS (1)
  - EDENTULOUS [None]
